FAERS Safety Report 5869340-3 (Version None)
Quarter: 2008Q3

REPORT INFORMATION
  Report Type: 
  Country: None (occurrence: None)
  Receive Date: 20080828
  Receipt Date: 20080811
  Transmission Date: 20090109
  Serious: Yes (Hospitalization)
  Sender: FDA-Public Use
  Company Number: WAES 0808USA01961

PATIENT
  Age: 70 Year
  Sex: Male
  Weight: 85.7298 kg

DRUGS (7)
  1. DECADRON [Suspect]
     Indication: BRAIN OEDEMA
     Dosage: 4 MG/PRN/PO
     Route: 048
  2. TAB PAZOPANIB HYDROCHLORIDE UNK [Suspect]
     Indication: MALIGNANT GLIOMA
     Dosage: 200 MG/DAILY/PO
     Route: 048
     Dates: start: 20070418, end: 20070515
  3. TAB LAPATINIB DITOSYLATE UKN [Suspect]
     Indication: MALIGNANT GLIOMA
     Dosage: 1500 MG/DAILY/PO
     Route: 048
     Dates: start: 20070418, end: 20070515
  4. DILANTIN [Concomitant]
  5. ATORVASTATIN CALCIUM [Concomitant]
  6. TAMSULOSIN HCL [Concomitant]
  7. VALACYCLOVIR HYDROCHLORIDE [Concomitant]

REACTIONS (2)
  - HYPERGLYCAEMIA [None]
  - TRANSAMINASES INCREASED [None]
